FAERS Safety Report 4445876-7 (Version None)
Quarter: 2004Q3

REPORT INFORMATION
  Report Type: 
  Country: None (occurrence: None)
  Receive Date: 20040902
  Receipt Date: 20040812
  Transmission Date: 20050211
  Serious: Yes (Hospitalization)
  Sender: FDA-Public Use
  Company Number: FR_040804584

PATIENT
  Age: 38 Year
  Sex: Female
  Weight: 55 kg

DRUGS (8)
  1. ZYPREXA [Suspect]
     Dates: start: 20040311, end: 20040324
  2. CYCLOPHOSPHAMIDE [Concomitant]
  3. TRANXENE [Concomitant]
  4. PAROXETINE HCL [Concomitant]
  5. TOPALGIC (TRAMADOL HYDROCHLORIDE) [Concomitant]
  6. BACTRIM [Concomitant]
  7. IMOVANE (ZOPICLONE) [Concomitant]
  8. FUNGIZONE [Concomitant]

REACTIONS (4)
  - ALANINE AMINOTRANSFERASE INCREASED [None]
  - CONDITION AGGRAVATED [None]
  - MYELOCYTOSIS [None]
  - NEOPLASM MALIGNANT [None]
